FAERS Safety Report 10731009 (Version 2)
Quarter: 2017Q4

REPORT INFORMATION
  Report Type: Spontaneous
  Country: US (occurrence: US)
  Receive Date: 20150122
  Receipt Date: 20171003
  Transmission Date: 20180320
  Serious: No
  Sender: FDA-Public Use
  Company Number: US-PFIZER INC-2015023920

PATIENT
  Age: 80 Year
  Sex: Female
  Weight: 56.7 kg

DRUGS (1)
  1. TOLTERODINE TARTRATE. [Suspect]
     Active Substance: TOLTERODINE TARTRATE
     Indication: HYPERTONIC BLADDER
     Dosage: UNK

REACTIONS (1)
  - Drug ineffective [Recovered/Resolved]
